FAERS Safety Report 21355350 (Version 2)
Quarter: 2022Q4

REPORT INFORMATION
  Report Type: Spontaneous
  Country: GB (occurrence: GB)
  Receive Date: 20220920
  Receipt Date: 20221021
  Transmission Date: 20230112
  Serious: Yes (Hospitalization, Other)
  Sender: FDA-Public Use
  Company Number: GB-MHRA-MED-202209132128468030-GDFQC

PATIENT
  Age: 37 Year
  Sex: Male
  Weight: 65 kg

DRUGS (2)
  1. CIPROFLOXACIN [Suspect]
     Active Substance: CIPROFLOXACIN
     Dates: start: 20220825, end: 20220908
  2. VALPROIC ACID [Suspect]
     Active Substance: VALPROIC ACID
     Indication: Adverse drug reaction
     Dates: start: 20200906

REACTIONS (1)
  - Lymphadenopathy [Recovered/Resolved with Sequelae]

NARRATIVE: CASE EVENT DATE: 20220825
